FAERS Safety Report 7233405-4 (Version None)
Quarter: 2011Q1

REPORT INFORMATION
  Report Type: 
  Country: None (occurrence: None)
  Receive Date: 20110119
  Receipt Date: 20110107
  Transmission Date: 20110831
  Serious: Yes (Other)
  Sender: FDA-Public Use
  Company Number: US-CELGENEUS-163-21880-11010986

PATIENT
  Sex: Female
  Weight: 48.578 kg

DRUGS (1)
  1. REVLIMID [Suspect]
     Route: 048
     Dates: start: 20100401

REACTIONS (3)
  - ANAEMIA [None]
  - DIARRHOEA [None]
  - DIABETES MELLITUS [None]
